FAERS Safety Report 5902405-6 (Version None)
Quarter: 2008Q3

REPORT INFORMATION
  Report Type: 
  Country: None (occurrence: None)
  Receive Date: 20080929
  Receipt Date: 20080918
  Transmission Date: 20090109
  Serious: Yes (Death)
  Sender: FDA-Public Use
  Company Number: JP-ABBOTT-08P-087-0478530-00

PATIENT
  Age: 40 Year
  Sex: Female

DRUGS (3)
  1. LEUPROLIDE ACETATE [Suspect]
     Indication: BREAST CANCER
     Route: 058
     Dates: start: 20060810, end: 20070726
  2. ANASTROZOLE [Concomitant]
     Indication: BRAIN TUMOUR OPERATION
     Route: 048
     Dates: end: 20070821
  3. ANASTROZOLE [Concomitant]
     Indication: METASTASES TO CENTRAL NERVOUS SYSTEM

REACTIONS (3)
  - BLOOD LACTATE DEHYDROGENASE INCREASED [None]
  - BREAST CANCER [None]
  - WHITE BLOOD CELL COUNT INCREASED [None]
